FAERS Safety Report 4936924-6 (Version None)
Quarter: 2006Q1

REPORT INFORMATION
  Report Type: 
  Country: None (occurrence: None)
  Receive Date: 20060307
  Receipt Date: 20050414
  Transmission Date: 20060701
  Serious: Yes (Hospitalization)
  Sender: FDA-Public Use
  Company Number: US-MERCK-0504USA02946

PATIENT
  Age: 59 Year
  Sex: Female
  Weight: 66 kg

DRUGS (6)
  1. VIOXX [Suspect]
     Indication: OSTEOARTHRITIS
     Route: 048
     Dates: start: 20000101, end: 20020301
  2. HYDRODIURIL [Concomitant]
     Route: 065
     Dates: start: 20000101, end: 20010101
  3. ULTRAM [Concomitant]
     Route: 065
     Dates: start: 20000101, end: 20040101
  4. NAVOLIN [Concomitant]
     Indication: DIABETES MELLITUS
     Route: 065
  5. HYZAAR [Concomitant]
     Indication: HYPERTENSION
     Route: 065
  6. ULTRACET [Concomitant]
     Indication: OSTEOARTHRITIS
     Route: 048

REACTIONS (1)
  - MYOCARDIAL INFARCTION [None]
